FAERS Safety Report 11536914 (Version 1)
Quarter: 2015Q3

REPORT INFORMATION
  Report Type: Spontaneous
  Country: US (occurrence: None)
  Receive Date: 20150921
  Receipt Date: 20150921
  Transmission Date: 20151125
  Serious: Yes (Disabling)
  Sender: FDA-Public Use
  Company Number: None

PATIENT
  Age: 61 Year
  Sex: Male
  Weight: 122.47 kg

DRUGS (8)
  1. CRESTOR [Suspect]
     Active Substance: ROSUVASTATIN CALCIUM
     Indication: BLOOD CHOLESTEROL INCREASED
     Route: 048
     Dates: start: 20050101, end: 20150917
  2. LISINOPRIL. [Concomitant]
     Active Substance: LISINOPRIL
  3. SHARK CARTILAGE [Concomitant]
     Active Substance: SHARK CARTILAGE\SHARK, UNSPECIFIED
  4. TURMERIC EXTRACT [Concomitant]
  5. ALLOPURINOL. [Concomitant]
     Active Substance: ALLOPURINOL
  6. METFORMIN [Concomitant]
     Active Substance: METFORMIN HYDROCHLORIDE
  7. GINGER ROOT [Concomitant]
  8. METOPROLOL TART [Concomitant]
     Active Substance: METOPROLOL TARTRATE

REACTIONS (6)
  - Abdominal pain lower [None]
  - Asthenia [None]
  - Arthralgia [None]
  - Type 2 diabetes mellitus [None]
  - Myalgia [None]
  - Excoriation [None]

NARRATIVE: CASE EVENT DATE: 20140401
